FAERS Safety Report 10718915 (Version 3)
Quarter: 2015Q1

REPORT INFORMATION
  Report Type: Spontaneous
  Country: AU (occurrence: AU)
  Receive Date: 20150119
  Receipt Date: 20150318
  Transmission Date: 20150721
  Serious: Yes (Hospitalization)
  Sender: FDA-Public Use
  Company Number: AU-009507513-1501AUS003718

PATIENT
  Sex: Male

DRUGS (1)
  1. ATOZET COMPOSITE PACK [Suspect]
     Active Substance: ATORVASTATIN CALCIUM\EZETIMIBE
     Dosage: UNK
     Route: 048
     Dates: start: 201412, end: 201501

REACTIONS (2)
  - Rhinitis [Unknown]
  - Secretion discharge [Unknown]
